FAERS Safety Report 9370092 (Version 1)
Quarter: 2013Q2

REPORT INFORMATION
  Report Type: Spontaneous
  Country: US (occurrence: US)
  Receive Date: 20130626
  Receipt Date: 20130626
  Transmission Date: 20140414
  Serious: Yes (Other)
  Sender: FDA-Public Use
  Company Number: CHPA2013US010187

PATIENT
  Age: 68 Year
  Sex: Female

DRUGS (3)
  1. EXCEDRIN PM [Suspect]
     Indication: INSOMNIA
     Dosage: 1 TO 2, QHS PRN
     Route: 048
  2. IBUPROFEN [Concomitant]
     Indication: ARTHRALGIA
     Dosage: UNK, UNK
  3. OTHER ANTIGLAUCOMA PREPARATIONS [Concomitant]

REACTIONS (5)
  - Glaucoma [Not Recovered/Not Resolved]
  - Road traffic accident [Unknown]
  - Off label use [Unknown]
  - Expired drug administered [Unknown]
  - Underdose [Unknown]
